FAERS Safety Report 17490483 (Version 1)
Quarter: 2020Q1

REPORT INFORMATION
  Report Type: Spontaneous
  Country: US (occurrence: US)
  Receive Date: 20200303
  Receipt Date: 20200303
  Transmission Date: 20200409
  Serious: No
  Sender: FDA-Public Use
  Company Number: US-AKORN PHARMACEUTICALS-2019AKN00608

PATIENT
  Sex: Male
  Weight: 80.73 kg

DRUGS (6)
  1. MYORISAN [Suspect]
     Active Substance: ISOTRETINOIN
     Indication: ACNE
     Dosage: 30 MG, 2X/DAY
     Route: 048
     Dates: start: 20181001, end: 20190321
  2. FLUOCINOLONE OIL [Concomitant]
  3. HPR PLUS [Concomitant]
  4. CLARAVIS [Suspect]
     Active Substance: ISOTRETINOIN
     Indication: ACNE
     Dosage: 30 MG, 2X/DAY
     Route: 048
     Dates: start: 20181127, end: 20190321
  5. ZYRTEC [Concomitant]
     Active Substance: CETIRIZINE HYDROCHLORIDE
  6. FLONASE [Concomitant]
     Active Substance: FLUTICASONE PROPIONATE
     Dosage: UNK, AS NEEDED

REACTIONS (4)
  - Treatment noncompliance [Recovered/Resolved]
  - Product dose omission [Recovered/Resolved]
  - Melanocytic naevus [Not Recovered/Not Resolved]
  - Lentigo [Not Recovered/Not Resolved]
